FAERS Safety Report 25921069 (Version 1)
Quarter: 2025Q4

REPORT INFORMATION
  Report Type: Spontaneous
  Country: US (occurrence: US)
  Receive Date: 20251014
  Receipt Date: 20251014
  Transmission Date: 20260117
  Serious: Yes (Other)
  Sender: PURDUE
  Company Number: US-PURDUE PHARMA-USA-2025-0321351

PATIENT
  Age: 25 Year
  Sex: Male

DRUGS (1)
  1. MORPHINE SULFATE [Suspect]
     Active Substance: MORPHINE SULFATE
     Indication: Product used for unknown indication
     Dosage: UNK
     Route: 048

REACTIONS (7)
  - Road traffic accident [Unknown]
  - Suicidal ideation [Unknown]
  - Impaired driving ability [Unknown]
  - Overdose [Unknown]
  - Physical assault [Unknown]
  - Child abuse [Unknown]
  - Aggression [Unknown]
